FAERS Safety Report 10204849 (Version 1)
Quarter: 2014Q2

REPORT INFORMATION
  Report Type: Spontaneous
  Country: US (occurrence: US)
  Receive Date: 20140529
  Receipt Date: 20140529
  Transmission Date: 20141212
  Serious: Yes (Other)
  Sender: FDA-Public Use
  Company Number: US-PFIZER INC-2014143746

PATIENT
  Sex: Male

DRUGS (1)
  1. INFANT ADVIL CONCENTRATED DROPS [Suspect]
     Dosage: UNK

REACTIONS (2)
  - Diarrhoea haemorrhagic [Unknown]
  - Hypersensitivity [Unknown]
